FAERS Safety Report 19909929 (Version 2)
Quarter: 2021Q4

REPORT INFORMATION
  Report Type: Report from Study
  Country: VN (occurrence: VN)
  Receive Date: 20211003
  Receipt Date: 20211013
  Transmission Date: 20220303
  Serious: Yes (Hospitalization)
  Sender: FDA-Public Use
  Company Number: NVSC2021VN218891

PATIENT
  Sex: Male

DRUGS (2)
  1. ROSUVASTATIN [Suspect]
     Active Substance: ROSUVASTATIN
     Indication: Angina unstable
     Dosage: 10 MG, UNKNOWN
     Route: 065
  2. ROSUVASTATIN [Suspect]
     Active Substance: ROSUVASTATIN
     Dosage: 20 MG, UNKNOWN
     Route: 065

REACTIONS (5)
  - Adverse event [Unknown]
  - Drug intolerance [Unknown]
  - Adverse drug reaction [Unknown]
  - Low density lipoprotein decreased [Unknown]
  - Product use in unapproved indication [Unknown]
